FAERS Safety Report 11402518 (Version 1)
Quarter: 2015Q3

REPORT INFORMATION
  Report Type: Spontaneous
  Country: US (occurrence: US)
  Receive Date: 20150821
  Receipt Date: 20150821
  Transmission Date: 20151125
  Serious: No
  Sender: FDA-Public Use
  Company Number: US-ROCHE-1298242

PATIENT
  Sex: Male

DRUGS (1)
  1. PEGASYS [Suspect]
     Active Substance: PEGINTERFERON ALFA-2A
     Indication: PRODUCT USED FOR UNKNOWN INDICATION
     Route: 065

REACTIONS (11)
  - Depression [Unknown]
  - Muscle spasms [Unknown]
  - Pruritus [Unknown]
  - Myalgia [Unknown]
  - Ear infection staphylococcal [Unknown]
  - Otorrhoea [Unknown]
  - Decreased appetite [Unknown]
  - Eye pruritus [Unknown]
  - Dyspnoea [Unknown]
  - Fatigue [Unknown]
  - Dry eye [Unknown]
